FAERS Safety Report 24965770 (Version 4)
Quarter: 2025Q2

REPORT INFORMATION
  Report Type: Spontaneous
  Country: US (occurrence: US)
  Receive Date: 20250213
  Receipt Date: 20250407
  Transmission Date: 20250717
  Serious: No
  Sender: PFIZER
  Company Number: US-PFIZER INC-202500027531

PATIENT
  Age: 14 Year
  Sex: Male

DRUGS (1)
  1. GENOTROPIN [Suspect]
     Active Substance: SOMATROPIN
     Dosage: 2.4 MG, DAILY

REACTIONS (8)
  - Weight decreased [Unknown]
  - Drug dose omission by device [Unknown]
  - Device breakage [Unknown]
  - Device physical property issue [Unknown]
  - Device issue [Unknown]
  - Device leakage [Unknown]
  - Device deployment issue [Unknown]
  - Device issue [Unknown]
